APPROVED DRUG PRODUCT: OXAPROZIN
Active Ingredient: OXAPROZIN
Strength: 600MG
Dosage Form/Route: TABLET;ORAL
Application: A075846 | Product #001
Applicant: IVAX PHARMACEUTICALS INC SUB TEVA PHARMACEUTICALS USA
Approved: May 13, 2002 | RLD: No | RS: No | Type: DISCN